FAERS Safety Report 23707502 (Version 2)
Quarter: 2024Q2

REPORT INFORMATION
  Report Type: Report from Study
  Country: US (occurrence: US)
  Receive Date: 20240404
  Receipt Date: 20240503
  Transmission Date: 20240716
  Serious: Yes (Other)
  Sender: FDA-Public Use
  Company Number: US-OTSUKA-2023_006663

PATIENT
  Age: 57 Year
  Sex: Male

DRUGS (3)
  1. TOLVAPTAN [Suspect]
     Active Substance: TOLVAPTAN
     Indication: Congenital cystic kidney disease
     Dosage: 45 MG, QD (EVERY MORNING)
     Route: 048
     Dates: start: 20221118
  2. TOLVAPTAN [Suspect]
     Active Substance: TOLVAPTAN
     Indication: Congenital cystic kidney disease
     Dosage: 15 MG, QD (EVERY EVENING)
     Route: 048
     Dates: start: 20221118
  3. TOLVAPTAN [Suspect]
     Active Substance: TOLVAPTAN
     Dosage: UNK
     Route: 065
     Dates: start: 20230614

REACTIONS (9)
  - Epilepsy [Unknown]
  - Latent tuberculosis [Unknown]
  - Poor quality sleep [Unknown]
  - Insomnia [Unknown]
  - Polydipsia [Not Recovered/Not Resolved]
  - Nocturia [Unknown]
  - Thirst [Not Recovered/Not Resolved]
  - Pollakiuria [Unknown]
  - Dizziness [Unknown]

NARRATIVE: CASE EVENT DATE: 20230618
